FAERS Safety Report 8999695 (Version 4)
Quarter: 2013Q1

REPORT INFORMATION
  Report Type: Spontaneous
  Country: US (occurrence: US)
  Receive Date: 20130102
  Receipt Date: 20130219
  Transmission Date: 20140127
  Serious: Yes (Other)
  Sender: FDA-Public Use
  Company Number: US-GLAXOSMITHKLINE-A0984031A

PATIENT
  Age: 28 Year
  Sex: Female

DRUGS (1)
  1. FLOLAN [Suspect]
     Indication: PULMONARY ARTERIAL HYPERTENSION
     Dosage: 7NGKM CONTINUOUS
     Route: 042
     Dates: start: 20120604

REACTIONS (5)
  - Depressed level of consciousness [Unknown]
  - Fatigue [Unknown]
  - Dyspnoea [Unknown]
  - Diarrhoea [Recovering/Resolving]
  - Therapy cessation [Unknown]
